FAERS Safety Report 15470224 (Version 2)
Quarter: 2019Q3

REPORT INFORMATION
  Report Type: Spontaneous
  Country: US (occurrence: US)
  Receive Date: 20181005
  Receipt Date: 20190717
  Transmission Date: 20191004
  Serious: Yes (Other)
  Sender: FDA-Public Use
  Company Number: US-ELI_LILLY_AND_COMPANY-US201809012290

PATIENT
  Sex: Male
  Weight: 90.5 kg

DRUGS (6)
  1. CIALIS [Suspect]
     Active Substance: TADALAFIL
     Indication: RADICAL PROSTATECTOMY
     Dosage: UNK, DAILY
     Route: 065
     Dates: start: 20090218, end: 20090415
  2. LIPITOR [Concomitant]
     Active Substance: ATORVASTATIN CALCIUM
     Indication: HYPERLIPIDAEMIA
     Dosage: UNK
     Dates: start: 20090203
  3. NIVOLUMAB [Concomitant]
     Active Substance: NIVOLUMAB
     Indication: BRAF GENE MUTATION
     Dosage: UNK
     Dates: start: 20150707
  4. ONDANSETRON [Concomitant]
     Active Substance: ONDANSETRON
     Indication: NAUSEA
     Dosage: UNK
     Dates: start: 20140327, end: 20141229
  5. PRIMIDONE. [Concomitant]
     Active Substance: PRIMIDONE
     Indication: SEIZURE
     Dosage: UNK
     Dates: start: 20030120
  6. CIALIS [Suspect]
     Active Substance: TADALAFIL
     Indication: PROSTATE CANCER
     Dosage: UNK, WEEKLY (1/W)
     Route: 065
     Dates: start: 20090429, end: 20110412

REACTIONS (5)
  - Metastases to central nervous system [Unknown]
  - Metastases to lung [Unknown]
  - Depression [Unknown]
  - Metastatic malignant melanoma [Unknown]
  - Off label use [Unknown]

NARRATIVE: CASE EVENT DATE: 20090218
